FAERS Safety Report 19029686 (Version 2)
Quarter: 2021Q2

REPORT INFORMATION
  Report Type: Spontaneous
  Country: US (occurrence: US)
  Receive Date: 20210319
  Receipt Date: 20210423
  Transmission Date: 20210717
  Serious: Yes (Other)
  Sender: FDA-Public Use
  Company Number: US-ORGANON-O2103USA002085

PATIENT
  Age: 81 Year
  Sex: Female
  Weight: 55.6 kg

DRUGS (9)
  1. SIMVASTATIN. [Suspect]
     Active Substance: SIMVASTATIN
     Indication: BLOOD CHOLESTEROL ABNORMAL
     Dosage: 20 MILLIGRAM, ONCE DAILY
     Route: 048
     Dates: end: 20210301
  2. COVID?19 VACCINE NOS. [Concomitant]
     Active Substance: COVID-19 VACCINE NOS
  3. AMLODIPINE [Concomitant]
     Active Substance: AMLODIPINE BESYLATE
     Dosage: 0.5 TABLET, QD
     Route: 048
     Dates: start: 20200929
  4. VOLTAREN XR [Concomitant]
     Active Substance: DICLOFENAC SODIUM
     Dosage: APPLY 2 GM OF GEL ,2 TO 4 TIMES DAILY NOT MORE THAN 8 GM DAILY TO ANYONE AFFECTED JOINT
     Route: 061
     Dates: start: 20210127
  5. ZOCOR [Suspect]
     Active Substance: SIMVASTATIN
     Dosage: 1 TABLET, QD (20 MG STRENGTH)
     Route: 048
     Dates: start: 20200709
  6. SIMVASTATIN. [Suspect]
     Active Substance: SIMVASTATIN
     Indication: HYPERLIPIDAEMIA
  7. FLUTICASONE PROPIONATE. [Concomitant]
     Active Substance: FLUTICASONE PROPIONATE
     Dosage: ONE SPARY IN EACH NOSTRILS, ONCE DAILY
     Route: 045
     Dates: start: 20201123
  8. ZOCOR [Suspect]
     Active Substance: SIMVASTATIN
     Dosage: UNK
     Route: 048
  9. COZAAR [Concomitant]
     Active Substance: LOSARTAN POTASSIUM
     Dosage: 0.5 TABLET, QD
     Route: 048
     Dates: start: 20200929

REACTIONS (2)
  - Migraine [Recovered/Resolved]
  - Blindness transient [Recovered/Resolved]

NARRATIVE: CASE EVENT DATE: 20210301
